FAERS Safety Report 5993650-2 (Version None)
Quarter: 2008Q4

REPORT INFORMATION
  Report Type: 
  Country: None (occurrence: None)
  Receive Date: 20081212
  Receipt Date: 20081209
  Transmission Date: 20090506
  Serious: Yes (Death, Other)
  Sender: FDA-Public Use
  Company Number: PHBS2008AT06613

PATIENT
  Age: 6 Month
  Sex: Male

DRUGS (2)
  1. IMATINIB MESYLATE [Suspect]
     Indication: GLIOMA
     Dosage: 270 MG/M2/DAY
  2. ANTINEOPLASTIC AGENTS [Concomitant]

REACTIONS (5)
  - BACTERIAL SEPSIS [None]
  - GASTROINTESTINAL DISORDER [None]
  - ILEUS PARALYTIC [None]
  - PSYCHOMOTOR SKILLS IMPAIRED [None]
  - TREMOR [None]
